FAERS Safety Report 5819744-X (Version None)
Quarter: 2008Q3

REPORT INFORMATION
  Report Type: 
  Country: None (occurrence: None)
  Receive Date: 20080723
  Receipt Date: 20080716
  Transmission Date: 20090109
  Serious: Yes (Other)
  Sender: FDA-Public Use
  Company Number: CN-PFIZER INC-2008057642

PATIENT
  Age: 70 Year
  Sex: Male

DRUGS (5)
  1. LIPITOR [Suspect]
     Indication: LIPIDS INCREASED
     Route: 048
     Dates: start: 20080225, end: 20080601
  2. TRIMETAZIDINE HYDROCHLORIDE [Concomitant]
     Route: 048
  3. HERBAL PREPARATION [Concomitant]
     Route: 048
  4. ACETYLSALICYLIC ACID SRT [Concomitant]
  5. HERBAL PREPARATION [Concomitant]
     Route: 048

REACTIONS (3)
  - ARTERIAL DISORDER [None]
  - DRUG INEFFECTIVE [None]
  - ILL-DEFINED DISORDER [None]
